FAERS Safety Report 21436278 (Version 1)
Quarter: 2022Q4

REPORT INFORMATION
  Report Type: Spontaneous
  Country: SA (occurrence: SA)
  Receive Date: 20221010
  Receipt Date: 20221010
  Transmission Date: 20230113
  Serious: Yes (Life-Threatening, Hospitalization, Other)
  Sender: FDA-Public Use
  Company Number: SA-SA-2022SA411897

PATIENT
  Age: 3 Month
  Sex: Male

DRUGS (1)
  1. ENOXAPARIN SODIUM [Suspect]
     Active Substance: ENOXAPARIN SODIUM
     Indication: Vascular access site thrombosis

REACTIONS (12)
  - Pulmonary haemorrhage [Recovering/Resolving]
  - Mouth haemorrhage [Recovering/Resolving]
  - Haemorrhage [Recovering/Resolving]
  - Aspiration [Recovering/Resolving]
  - Cardio-respiratory arrest [Recovering/Resolving]
  - Acute lung injury [Recovering/Resolving]
  - Respiratory failure [Recovering/Resolving]
  - Lactic acidosis [Recovering/Resolving]
  - Metabolic acidosis [Recovering/Resolving]
  - Respiratory acidosis [Recovering/Resolving]
  - Interstitial lung disease [Recovering/Resolving]
  - Sinus bradycardia [Recovering/Resolving]
